FAERS Safety Report 6541152-7 (Version None)
Quarter: 2010Q1

REPORT INFORMATION
  Report Type: 
  Country: None (occurrence: None)
  Receive Date: 20100118
  Receipt Date: 20100113
  Transmission Date: 20100710
  Serious: Yes (Other)
  Sender: FDA-Public Use
  Company Number: A0834784A

PATIENT
  Age: 57 Year
  Sex: Female

DRUGS (2)
  1. RYTHMOL SR [Suspect]
     Indication: ATRIAL FIBRILLATION
     Dosage: 325MG PER DAY
     Route: 048
     Dates: end: 20091125
  2. LIPITOR [Concomitant]

REACTIONS (7)
  - ACTIVITIES OF DAILY LIVING IMPAIRED [None]
  - ADVERSE DRUG REACTION [None]
  - ATRIAL FIBRILLATION [None]
  - DIZZINESS [None]
  - DYSPNOEA [None]
  - DYSPNOEA EXERTIONAL [None]
  - MOBILITY DECREASED [None]
